FAERS Safety Report 4713410-X (Version None)
Quarter: 2005Q3

REPORT INFORMATION
  Report Type: 
  Country: None (occurrence: None)
  Receive Date: 20050711
  Receipt Date: 20050622
  Transmission Date: 20060218
  Serious: Yes (Death, Hospitalization)
  Sender: FDA-Public Use
  Company Number: 213190

PATIENT
  Age: 71 Year
  Sex: Female

DRUGS (5)
  1. MABTHERA              (RITUXIMAB) [Suspect]
     Indication: NON-HODGKIN'S LYMPHOMA
     Route: 042
  2. CYCLOPHOSPHAMIDE [Suspect]
     Indication: NON-HODGKIN'S LYMPHOMA
  3. VINCRISTINE [Suspect]
     Indication: NON-HODGKIN'S LYMPHOMA
     Route: 042
  4. DOXORUBICIN                              (DOXORUBICIN HYDROCHLORID) [Suspect]
     Indication: NON-HODGKIN'S LYMPHOMA
     Route: 042
  5. PREDNISONE [Suspect]
     Indication: NON-HODGKIN'S LYMPHOMA

REACTIONS (7)
  - BRONCHOPNEUMONIA [None]
  - FEBRILE INFECTION [None]
  - GENERAL PHYSICAL HEALTH DETERIORATION [None]
  - HYPOTONIA [None]
  - SEPSIS [None]
  - STAPHYLOCOCCAL INFECTION [None]
  - TACHYCARDIA [None]
